FAERS Safety Report 4753792-6 (Version None)
Quarter: 2005Q3

REPORT INFORMATION
  Report Type: 
  Country: None (occurrence: None)
  Receive Date: 20050823
  Receipt Date: 20050718
  Transmission Date: 20060218
  Serious: No
  Sender: FDA-Public Use
  Company Number: 216166

PATIENT
  Sex: Female

DRUGS (1)
  1. RAPTIVA [Suspect]
     Indication: PSORIASIS
     Dosage: 0.9 ML, 1/WEEK, SUBCUTANEOUS
     Route: 058

REACTIONS (3)
  - HEADACHE [None]
  - INJECTION SITE HAEMORRHAGE [None]
  - PYREXIA [None]
